FAERS Safety Report 9145347 (Version 2)
Quarter: 2013Q1

REPORT INFORMATION
  Report Type: Spontaneous
  Country: TR (occurrence: TR)
  Receive Date: 20130307
  Receipt Date: 20130318
  Transmission Date: 20140127
  Serious: Yes (Life-Threatening)
  Sender: FDA-Public Use
  Company Number: TR-009507513-1302TUR013733

PATIENT
  Age: 53 Year
  Sex: Male

DRUGS (3)
  1. ESMERON [Suspect]
     Dosage: TOTAL DAILY DOSE 40MG
     Route: 042
     Dates: start: 20130228, end: 20130228
  2. PENTOTHAL [Concomitant]
  3. FENTANYL [Concomitant]

REACTIONS (2)
  - Drug ineffective [Recovered/Resolved]
  - Drug ineffective [Recovered/Resolved]
